FAERS Safety Report 20698256 (Version 1)
Quarter: 2022Q2

REPORT INFORMATION
  Report Type: Spontaneous
  Country: US (occurrence: US)
  Receive Date: 20220412
  Receipt Date: 20220412
  Transmission Date: 20220721
  Serious: No
  Sender: FDA-Public Use
  Company Number: US-BION-010033

PATIENT
  Age: 70 Year
  Sex: Male

DRUGS (1)
  1. ALEVE BACK AND MUSCLE PAIN [Suspect]
     Active Substance: NAPROXEN SODIUM
     Indication: Product used for unknown indication

REACTIONS (3)
  - Dizziness [Unknown]
  - Discomfort [Unknown]
  - Tremor [Unknown]
